FAERS Safety Report 8027341-3 (Version None)
Quarter: 2011Q4

REPORT INFORMATION
  Report Type: 
  Country: None (occurrence: None)
  Receive Date: 20111130
  Receipt Date: 20110727
  Transmission Date: 20120403
  Serious: Yes (Hospitalization, Other)
  Sender: FDA-Public Use
  Company Number: US201107007409

PATIENT
  Age: 68 Year
  Sex: Female
  Weight: 108.8 kg

DRUGS (8)
  1. NABUMETONE [Concomitant]
  2. BYETTA [Suspect]
     Indication: TYPE 2 DIABETES MELLITUS
     Dosage: 5 UG, BID, SUBCUTANEOUS, 10 UG, BID, SUBCUTANEOUS
     Route: 058
     Dates: start: 20051201
  3. BYETTA [Suspect]
     Indication: TYPE 2 DIABETES MELLITUS
     Dosage: 5 UG, BID, SUBCUTANEOUS, 10 UG, BID, SUBCUTANEOUS
     Route: 058
     Dates: end: 20110702
  4. LISINOPRIL [Concomitant]
  5. VITAMIN D [Concomitant]
  6. METFORMIN HCL [Concomitant]
  7. GLIPIZIDE [Concomitant]
  8. KLOR-CON [Concomitant]

REACTIONS (7)
  - WEIGHT FLUCTUATION [None]
  - DECREASED APPETITE [None]
  - VOMITING [None]
  - ABDOMINAL PAIN [None]
  - NAUSEA [None]
  - PANCREATITIS [None]
  - ABDOMINAL DISCOMFORT [None]
